FAERS Safety Report 21734623 (Version 1)
Quarter: 2022Q4

REPORT INFORMATION
  Report Type: Spontaneous
  Country: US (occurrence: US)
  Receive Date: 20221215
  Receipt Date: 20221215
  Transmission Date: 20230113
  Serious: No
  Sender: FDA-Public Use
  Company Number: US-ELI_LILLY_AND_COMPANY-US202211008397

PATIENT
  Age: 59 Year
  Sex: Female

DRUGS (3)
  1. MOUNJARO [Suspect]
     Active Substance: TIRZEPATIDE
     Indication: Glycosylated haemoglobin increased
     Dosage: UNK UNK, WEEKLY (1/W)
     Route: 058
     Dates: start: 202209
  2. MOUNJARO [Suspect]
     Active Substance: TIRZEPATIDE
     Dosage: 7.5 MG, WEEKLY (1/W)
     Route: 058
     Dates: start: 20221108
  3. PRALUENT [Concomitant]
     Active Substance: ALIROCUMAB
     Indication: Blood cholesterol increased
     Dosage: UNK UNK, 2/M (75MG/ML)

REACTIONS (7)
  - Dizziness [Recovered/Resolved]
  - Oropharyngeal discomfort [Recovered/Resolved]
  - Injection site injury [Not Recovered/Not Resolved]
  - Injection site pain [Recovered/Resolved]
  - Injection site haemorrhage [Recovered/Resolved]
  - Injection site haematoma [Not Recovered/Not Resolved]
  - Off label use [Recovered/Resolved]

NARRATIVE: CASE EVENT DATE: 20221108
